FAERS Safety Report 5100559-5 (Version None)
Quarter: 2006Q3

REPORT INFORMATION
  Report Type: 
  Country: None (occurrence: None)
  Receive Date: 20060907
  Receipt Date: 20060907
  Transmission Date: 20061208
  Serious: Yes (Other)
  Sender: FDA-Public Use
  Company Number: None

PATIENT
  Age: 28 Year
  Sex: Female

DRUGS (1)
  1. GEODON [Suspect]
     Indication: PSYCHOTIC DISORDER
     Dosage: 80 MG PO BID
     Route: 048
     Dates: start: 20060808

REACTIONS (2)
  - MUSCULOSKELETAL STIFFNESS [None]
  - TONGUE DISORDER [None]
